FAERS Safety Report 22824761 (Version 3)
Quarter: 2023Q4

REPORT INFORMATION
  Report Type: Spontaneous
  Country: US (occurrence: US)
  Receive Date: 20230815
  Receipt Date: 20231120
  Transmission Date: 20240110
  Serious: No
  Sender: FDA-Public Use
  Company Number: US-JNJFOC-20230826016

PATIENT
  Age: 35 Year
  Sex: Female
  Weight: 54.48 kg

DRUGS (6)
  1. SPRAVATO [Suspect]
     Active Substance: ESKETAMINE
     Indication: Major depression
     Dosage: ADMINISTER 1 SPRAY IN EACH NOSTRIL
     Route: 065
     Dates: start: 20230808
  2. SPRAVATO [Suspect]
     Active Substance: ESKETAMINE
     Indication: Depression
  3. BUSPAR [Concomitant]
     Active Substance: BUSPIRONE HYDROCHLORIDE
     Indication: Anxiety
     Route: 048
     Dates: start: 202308
  4. AZSTARYS [Concomitant]
     Active Substance: DEXMETHYLPHENIDATE HYDROCHLORIDE\SERDEXMETHYLPHENIDATE CHLORIDE
     Indication: Attention deficit hyperactivity disorder
     Route: 048
     Dates: start: 202307
  5. KLONOPIN [Concomitant]
     Active Substance: CLONAZEPAM
     Indication: Anxiety
     Route: 048
     Dates: start: 202304
  6. MOUNJARO [Concomitant]
     Active Substance: TIRZEPATIDE
     Indication: Weight decreased
     Route: 058
     Dates: start: 202304

REACTIONS (2)
  - Device defective [Unknown]
  - Product dose omission issue [Unknown]

NARRATIVE: CASE EVENT DATE: 20230808
